FAERS Safety Report 16199042 (Version 1)
Quarter: 2019Q2

REPORT INFORMATION
  Report Type: Spontaneous
  Country: NL (occurrence: NL)
  Receive Date: 20190415
  Receipt Date: 20190415
  Transmission Date: 20190711
  Serious: Yes (Other)
  Sender: FDA-Public Use
  Company Number: NL-MYLANLABS-2019M1035033

PATIENT
  Age: 72 Year
  Sex: Female

DRUGS (5)
  1. TRIAMTERENE. [Concomitant]
     Active Substance: TRIAMTERENE
     Dosage: UNK
  2. ENALAPRIL [Concomitant]
     Active Substance: ENALAPRIL
     Dosage: UNK
  3. PRAVASTATIN. [Concomitant]
     Active Substance: PRAVASTATIN
     Dosage: UNK
  4. CARBIDOPA/LEVODOPA [Suspect]
     Active Substance: CARBIDOPA\LEVODOPA
     Dosage: 1187.5 MILLIGRAM, QD
     Route: 048
  5. CARBIDOPA/LEVODOPA [Suspect]
     Active Substance: CARBIDOPA\LEVODOPA
     Indication: PARKINSON^S DISEASE
     Dosage: FOR SOME YEARS, THE PATIENT HAD BEEN TAKING LEVODOPA/CARBIDOPA TABLETS IN INCREASING DOSES
     Route: 048

REACTIONS (3)
  - Vitamin B6 deficiency [Recovering/Resolving]
  - Peripheral sensory neuropathy [Recovering/Resolving]
  - Gait disturbance [Recovering/Resolving]
